FAERS Safety Report 8227601-7 (Version None)
Quarter: 2012Q1

REPORT INFORMATION
  Report Type: 
  Country: None (occurrence: None)
  Receive Date: 20120322
  Receipt Date: 20120313
  Transmission Date: 20120608
  Serious: Yes (Other)
  Sender: FDA-Public Use
  Company Number: US-ABBOTT-12P-163-0907851-00

PATIENT
  Sex: Female
  Weight: 59.928 kg

DRUGS (12)
  1. XANAX [Concomitant]
     Indication: ANXIETY
  2. IMITREX [Concomitant]
     Indication: MIGRAINE
  3. ZOFRAN [Concomitant]
     Indication: NAUSEA
  4. DIAZEPAM [Concomitant]
     Indication: PRODUCT USED FOR UNKNOWN INDICATION
  5. HUMIRA [Suspect]
     Indication: ANKYLOSING SPONDYLITIS
     Dates: start: 20100113, end: 20111201
  6. VIT D3 [Concomitant]
     Indication: PRODUCT USED FOR UNKNOWN INDICATION
  7. HUMIRA [Suspect]
  8. MIRALAX [Concomitant]
     Indication: PRODUCT USED FOR UNKNOWN INDICATION
     Dosage: 17 G PER 8 OUNCES
  9. CYMBALTA [Concomitant]
     Indication: DEPRESSION
  10. CELEBREX [Concomitant]
     Indication: PRODUCT USED FOR UNKNOWN INDICATION
  11. HUMIRA [Suspect]
     Dates: start: 20120101, end: 20120201
  12. GABAPENTIN [Concomitant]
     Indication: ANXIETY

REACTIONS (6)
  - IMMUNOSUPPRESSION [None]
  - SINUSITIS [None]
  - INTERVERTEBRAL DISC PROTRUSION [None]
  - RADICULOPATHY [None]
  - NASAL MUCOSAL DISCOLOURATION [None]
  - EPISTAXIS [None]
